FAERS Safety Report 25364605 (Version 1)
Quarter: 2025Q2

REPORT INFORMATION
  Report Type: Spontaneous
  Country: RU (occurrence: RU)
  Receive Date: 20250527
  Receipt Date: 20250527
  Transmission Date: 20250716
  Serious: Yes (Life-Threatening, Other)
  Sender: ABBVIE
  Company Number: RU-ABBVIE-6299312

PATIENT
  Age: 3 Year
  Sex: Female
  Weight: 10 kg

DRUGS (6)
  1. SEVOFLURANE [Suspect]
     Active Substance: SEVOFLURANE
     Indication: Induction of anaesthesia
     Route: 055
     Dates: start: 20250422, end: 20250422
  2. Aquadetrim [Concomitant]
     Indication: Product used for unknown indication
  3. SULFAMETHOXAZOLE\TRIMETHOPRIM [Concomitant]
     Active Substance: SULFAMETHOXAZOLE\TRIMETHOPRIM
     Indication: Product used for unknown indication
     Route: 048
     Dates: start: 20250415
  4. Bitiron [Concomitant]
     Indication: Product used for unknown indication
     Route: 048
  5. Selamerex [Concomitant]
     Indication: Product used for unknown indication
     Route: 048
  6. ENALAPRIL [Concomitant]
     Active Substance: ENALAPRIL
     Indication: Hypertension
     Route: 048

REACTIONS (4)
  - Apnoea [Recovered/Resolved]
  - Blood creatine phosphokinase increased [Recovering/Resolving]
  - Hyperkalaemia [Unknown]
  - Hyperthermia [Recovered/Resolved]

NARRATIVE: CASE EVENT DATE: 20250422
